FAERS Safety Report 4654071-8 (Version None)
Quarter: 2005Q2

REPORT INFORMATION
  Report Type: 
  Country: None (occurrence: None)
  Receive Date: 20050504
  Receipt Date: 20050419
  Transmission Date: 20051028
  Serious: Yes (Other)
  Sender: FDA-Public Use
  Company Number: DSA_26354_2005

PATIENT
  Age: 54 Year
  Sex: Female

DRUGS (1)
  1. DILTIAZEM HCL [Suspect]
     Dates: start: 20020701, end: 20020801

REACTIONS (1)
  - LIVER DISORDER [None]
